FAERS Safety Report 10362209 (Version 1)
Quarter: 2014Q1

REPORT INFORMATION
  Report Type: Spontaneous
  Country: US (occurrence: None)
  Receive Date: 20140306
  Receipt Date: 20140306
  Transmission Date: 20141002
  Serious: Yes (Other)
  Sender: FDA-Public Use
  Company Number: 163-21880-13050511

PATIENT
  Age: 70 Year
  Sex: Male
  Weight: 79.38 kg

DRUGS (13)
  1. REVLIMID (LENALIDOMIDE) (15 MILLIGRAM, CAPSULES) [Suspect]
     Indication: PLASMA CELL MYELOMA
     Route: 048
     Dates: start: 201303
  2. ASPIRIN (ACETYLSALICYLIC ACID) (CHEWABLE TABLET) [Concomitant]
  3. VITAMIN B12 (CYANOCOBALAMIN) (UNKNOWN) [Concomitant]
  4. VICODIN ES (VICODIN) (UNKNOWN) [Concomitant]
  5. SENOKOT (SENNA FRUIT) (TABLETS) [Concomitant]
  6. MAGNESIUM (UNKNOWN) [Concomitant]
  7. DEXAMETHASONE (UNKNOWN) [Concomitant]
  8. FUROSEMIDE (TABLETS) [Concomitant]
  9. COLACE (DOCUSATE SODIUM) (CAPSULES) [Concomitant]
  10. VITAMIN D (ERGOCALCIFEROL) (UNKNOWN) [Concomitant]
  11. LASIX (FUROSEMIDE) (UNKNOWN) [Concomitant]
  12. ASA (ACETYLSALICYLIC ACID) (UNKNOWN) [Concomitant]
  13. CENTRUM SILVER (UNKNOWN) [Concomitant]

REACTIONS (21)
  - Anaemia [None]
  - Rhinorrhoea [None]
  - Local swelling [None]
  - Pain in extremity [None]
  - Musculoskeletal stiffness [None]
  - Nausea [None]
  - Spinal pain [None]
  - Oedema [None]
  - White blood cell count increased [None]
  - Weight increased [None]
  - Night sweats [None]
  - Constipation [None]
  - Diarrhoea [None]
  - Fatigue [None]
  - Asthenia [None]
  - Chills [None]
  - Paraesthesia [None]
  - Rash [None]
  - Musculoskeletal chest pain [None]
  - Dizziness [None]
  - Pyrexia [None]
